FAERS Safety Report 21897987 (Version 1)
Quarter: 2023Q1

REPORT INFORMATION
  Report Type: Spontaneous
  Country: US (occurrence: None)
  Receive Date: 20230120
  Receipt Date: 20230120
  Transmission Date: 20230418
  Serious: Yes (Disabling)
  Sender: FDA-Public Use
  Company Number: None

PATIENT
  Age: 37 Year
  Sex: Female
  Weight: 81 kg

DRUGS (3)
  1. VYVANSE [Suspect]
     Active Substance: LISDEXAMFETAMINE DIMESYLATE
     Indication: Attention deficit hyperactivity disorder
     Dosage: OTHER QUANTITY : 1 CAPSULE(S);?
     Route: 048
     Dates: start: 20230119
  2. GUANFACINE [Concomitant]
     Active Substance: GUANFACINE
  3. ERRIN [Concomitant]
     Active Substance: NORETHINDRONE

REACTIONS (3)
  - Headache [None]
  - Emotional disorder [None]
  - Crying [None]

NARRATIVE: CASE EVENT DATE: 20230120
